FAERS Safety Report 24416104 (Version 1)
Quarter: 2024Q4

REPORT INFORMATION
  Report Type: Spontaneous
  Country: US (occurrence: None)
  Receive Date: 20241008
  Receipt Date: 20241008
  Transmission Date: 20250114
  Serious: Yes (Hospitalization)
  Sender: Public
  Company Number: None

PATIENT
  Age: 73 Year
  Sex: Male
  Weight: 83 kg

DRUGS (1)
  1. DAPAGLIFLOZIN [Suspect]
     Active Substance: DAPAGLIFLOZIN
     Indication: Diabetes mellitus
     Dosage: FREQUENCY : DAILY;?
     Route: 048

REACTIONS (5)
  - Epididymitis [None]
  - Haematuria [None]
  - Urinary tract infection [None]
  - Urosepsis [None]
  - Escherichia infection [None]

NARRATIVE: CASE EVENT DATE: 20240501
